FAERS Safety Report 25042458 (Version 1)
Quarter: 2025Q1

REPORT INFORMATION
  Report Type: Spontaneous
  Country: CN (occurrence: CN)
  Receive Date: 20250305
  Receipt Date: 20250305
  Transmission Date: 20250409
  Serious: Yes (Hospitalization, Other)
  Sender: BAYER HEALTHCARE PHARMACEUTICALS INC.
  Company Number: CN-BAYER-2025A030984

PATIENT
  Age: 57 Year
  Sex: Male
  Weight: 60 kg

DRUGS (2)
  1. STIVARGA [Suspect]
     Active Substance: REGORAFENIB MONOHYDRATE
     Indication: Hepatic cancer
     Dosage: 80 MG, QD
     Route: 048
     Dates: start: 20250124
  2. TISLELIZUMAB [Suspect]
     Active Substance: TISLELIZUMAB
     Indication: Hepatic cancer
     Dosage: 200 MG, QD
     Route: 041
     Dates: start: 20250124, end: 20250205

REACTIONS (7)
  - Immune-mediated lung disease [Recovering/Resolving]
  - Dyspnoea [Recovering/Resolving]
  - Cough [None]
  - Chest pain [None]
  - Body temperature increased [None]
  - Incorrect dose administered [None]
  - Product prescribing issue [None]

NARRATIVE: CASE EVENT DATE: 20250101
